FAERS Safety Report 22219718 (Version 2)
Quarter: 2023Q2

REPORT INFORMATION
  Report Type: Report from Study
  Country: US (occurrence: US)
  Receive Date: 20230417
  Receipt Date: 20230614
  Transmission Date: 20230721
  Serious: Yes (Hospitalization)
  Sender: FDA-Public Use
  Company Number: US-JNJFOC-20230112214

PATIENT
  Age: 53 Year
  Sex: Female
  Weight: 86.9 kg

DRUGS (29)
  1. TECLISTAMAB [Suspect]
     Active Substance: TECLISTAMAB
     Indication: Plasma cell myeloma
     Route: 058
     Dates: start: 20210409, end: 20221212
  2. CEFDINIR [Concomitant]
     Active Substance: CEFDINIR
     Indication: Otitis media
     Route: 048
     Dates: start: 20230104, end: 20230105
  3. CEFDINIR [Concomitant]
     Active Substance: CEFDINIR
     Route: 048
     Dates: start: 20230104
  4. CEFTRIAXONE [Concomitant]
     Active Substance: CEFTRIAXONE
     Indication: Otitis media
     Route: 042
     Dates: start: 20230105, end: 20230107
  5. CEFEPIME [Concomitant]
     Active Substance: CEFEPIME HYDROCHLORIDE
     Indication: Otitis media
     Route: 065
     Dates: start: 20230105, end: 20230106
  6. LEVOTHYROXINE [Concomitant]
     Active Substance: LEVOTHYROXINE
     Indication: Hypothyroidism
     Route: 048
     Dates: start: 20220901
  7. ALBUTEROL [Concomitant]
     Active Substance: ALBUTEROL
     Indication: Asthma
     Route: 048
     Dates: start: 20230104
  8. ADVAIR HFA [Concomitant]
     Active Substance: FLUTICASONE PROPIONATE\SALMETEROL XINAFOATE
     Indication: Asthma
  9. TRAZODONE [Concomitant]
     Active Substance: TRAZODONE HYDROCHLORIDE
     Indication: Insomnia
  10. SUMATRIPTAN [Concomitant]
     Active Substance: SUMATRIPTAN
     Indication: Migraine
  11. APIXABAN [Concomitant]
     Active Substance: APIXABAN
     Route: 048
     Dates: start: 20220322
  12. CHOLECALCIFEROL [Concomitant]
     Active Substance: CHOLECALCIFEROL
     Dosage: 50000 UNITS
  13. COLACE [Concomitant]
     Active Substance: DOCUSATE SODIUM
     Route: 048
  14. OXYGEN [Concomitant]
     Active Substance: OXYGEN
     Indication: Hypoxia
     Dosage: 2-4L
     Route: 065
     Dates: start: 20230105
  15. GUAIFENESIN [Concomitant]
     Active Substance: GUAIFENESIN
     Indication: Rhinovirus infection
     Route: 048
  16. GUAIFENESIN [Concomitant]
     Active Substance: GUAIFENESIN
     Indication: Enterovirus infection
     Route: 048
     Dates: start: 20230110
  17. PEPCID [Concomitant]
     Active Substance: FAMOTIDINE
     Route: 048
     Dates: start: 20221010
  18. ADVAIR HFA [Concomitant]
     Active Substance: FLUTICASONE PROPIONATE\SALMETEROL XINAFOATE
     Indication: Asthma
     Route: 048
     Dates: start: 20220901
  19. FOLIC ACID [Concomitant]
     Active Substance: FOLIC ACID
     Route: 048
  20. LYRICA [Concomitant]
     Active Substance: PREGABALIN
     Route: 048
     Dates: start: 20221111
  21. MELATONIN [Concomitant]
     Active Substance: MELATONIN
     Route: 048
  22. OXYCODONE [Concomitant]
     Active Substance: OXYCODONE
     Indication: Pain
     Route: 048
     Dates: start: 20221227
  23. OXYCONTIN [Concomitant]
     Active Substance: OXYCODONE HYDROCHLORIDE
     Indication: Pain
     Route: 048
  24. OXYCONTIN [Concomitant]
     Active Substance: OXYCODONE HYDROCHLORIDE
     Route: 048
     Dates: start: 20221228
  25. POLYMYXIN B SULFATE;TRIMETHOPRIM [Concomitant]
     Dosage: RIGHT EYE
     Route: 065
  26. SULFAMETHOXAZOLE\TRIMETHOPRIM [Concomitant]
     Active Substance: SULFAMETHOXAZOLE\TRIMETHOPRIM
     Dosage: ONE TABLET, 3X/WEEK (MONDAY, WEDNESDAY AND FRIDAY)
     Route: 048
     Dates: start: 20220804
  27. IMITREX [Concomitant]
     Active Substance: SUMATRIPTAN SUCCINATE
     Route: 048
  28. VALTREX [Concomitant]
     Active Substance: VALACYCLOVIR HYDROCHLORIDE
     Route: 048
     Dates: start: 20220531
  29. BENZONATATE [Concomitant]
     Active Substance: BENZONATATE
     Indication: Cough
     Route: 048
     Dates: start: 20230110

REACTIONS (2)
  - Upper respiratory tract infection [Recovered/Resolved with Sequelae]
  - Clostridium difficile colitis [Recovered/Resolved]

NARRATIVE: CASE EVENT DATE: 20230105
